FAERS Safety Report 12917568 (Version 10)
Quarter: 2018Q2

REPORT INFORMATION
  Report Type: Spontaneous
  Country: US (occurrence: US)
  Receive Date: 20161107
  Receipt Date: 20180608
  Transmission Date: 20180711
  Serious: Yes (Hospitalization, Congenital Anomaly, Other)
  Sender: FDA-Public Use
  Company Number: PHEH2016US028874

PATIENT
  Sex: Female

DRUGS (2)
  1. ZOFRAN [Suspect]
     Active Substance: ONDANSETRON HYDROCHLORIDE
     Indication: FOETAL EXPOSURE DURING PREGNANCY
     Dosage: MOTHER DOSE: 08 MG, TID
     Route: 064
  2. ONDANSETRON [Suspect]
     Active Substance: ONDANSETRON
     Indication: FOETAL EXPOSURE DURING PREGNANCY
     Dosage: MOTHER^S DOSE: 8 MG, UNK
     Route: 064

REACTIONS (42)
  - Congenital eye disorder [Unknown]
  - Dehydration [Unknown]
  - Pneumonia aspiration [Unknown]
  - Pyrexia [Unknown]
  - Amblyopia [Unknown]
  - Conjunctivitis allergic [Unknown]
  - Single umbilical artery [Unknown]
  - Tachycardia foetal [Unknown]
  - Otitis media [Unknown]
  - Cleft palate [Unknown]
  - Congenital musculoskeletal anomaly [Unknown]
  - Metabolic acidosis [Unknown]
  - Tracheomalacia [Unknown]
  - Ear infection [Unknown]
  - Multiple congenital abnormalities [Unknown]
  - Haemangioma [Unknown]
  - Developmental delay [Unknown]
  - Limbal stem cell deficiency [Unknown]
  - Pyelocaliectasis [Unknown]
  - Dyspnoea [Unknown]
  - Corneal scar [Unknown]
  - Congenital vesicoureteric reflux [Unknown]
  - Congenital scoliosis [Unknown]
  - Foetal exposure during pregnancy [Unknown]
  - Respiratory distress [Unknown]
  - Conductive deafness [Unknown]
  - Hypotonia [Unknown]
  - Nasal congestion [Unknown]
  - Renal fusion anomaly [Unknown]
  - Congenital renal disorder [Unknown]
  - Dysmorphism [Unknown]
  - Premature baby [Unknown]
  - Spinal deformity [Unknown]
  - Feeding disorder [Unknown]
  - Micrognathia [Unknown]
  - Keratopathy [Unknown]
  - Hemivertebra [Unknown]
  - Congenital skin dimples [Unknown]
  - Gastric fistula [Unknown]
  - Upper respiratory tract infection [Unknown]
  - Sleep apnoea syndrome [Unknown]
  - Lagophthalmos [Unknown]
